FAERS Safety Report 7764641-6 (Version None)
Quarter: 2011Q3

REPORT INFORMATION
  Report Type: 
  Country: None (occurrence: None)
  Receive Date: 20110921
  Receipt Date: 20110915
  Transmission Date: 20111222
  Serious: Yes (Hospitalization)
  Sender: FDA-Public Use
  Company Number: PHEH2011US01962

PATIENT
  Sex: Male

DRUGS (1)
  1. EXJADE [Suspect]
     Indication: ACUTE MYELOID LEUKAEMIA
     Dosage: 2500 MG, QD
     Route: 048

REACTIONS (5)
  - PYREXIA [None]
  - RASH [None]
  - PLATELET DISORDER [None]
  - RASH GENERALISED [None]
  - ABDOMINAL DISCOMFORT [None]
